FAERS Safety Report 8506830-9 (Version None)
Quarter: 2012Q3

REPORT INFORMATION
  Report Type: 
  Country: None (occurrence: None)
  Receive Date: 20120712
  Receipt Date: 20120711
  Transmission Date: 20120928
  Serious: Yes (Other)
  Sender: FDA-Public Use
  Company Number: CN-PFIZER INC-2012165550

PATIENT
  Sex: Female

DRUGS (1)
  1. MEDROL [Suspect]
     Indication: DERMATOMYOSITIS
     Dosage: UNK
     Route: 048

REACTIONS (3)
  - EPILEPSY [None]
  - PSYCHIATRIC SYMPTOM [None]
  - DEPRESSION [None]
